FAERS Safety Report 7793817-7 (Version None)
Quarter: 2011Q4

REPORT INFORMATION
  Report Type: 
  Country: None (occurrence: None)
  Receive Date: 20111003
  Receipt Date: 20110921
  Transmission Date: 20120403
  Serious: Yes (Hospitalization, Other)
  Sender: FDA-Public Use
  Company Number: PHHY2011FR83998

PATIENT
  Sex: Female

DRUGS (2)
  1. GLEEVEC [Suspect]
     Dosage: 400 MG, DAILY
     Dates: start: 20110315, end: 20110420
  2. GLEEVEC [Suspect]
     Dosage: 200 MG, QD
     Dates: start: 20110606, end: 20110703

REACTIONS (3)
  - CYTOLYTIC HEPATITIS [None]
  - GENE MUTATION IDENTIFICATION TEST POSITIVE [None]
  - HAEMATOTOXICITY [None]
